FAERS Safety Report 23268921 (Version 2)
Quarter: 2023Q4

REPORT INFORMATION
  Report Type: Spontaneous
  Country: JP (occurrence: JP)
  Receive Date: 20231206
  Receipt Date: 20231225
  Transmission Date: 20240110
  Serious: Yes (Hospitalization, Other)
  Sender: FDA-Public Use
  Company Number: JP-MOCHP-A20234919

PATIENT
  Age: 3 Decade
  Sex: Male

DRUGS (2)
  1. LEXAPRO [Suspect]
     Active Substance: ESCITALOPRAM OXALATE
     Indication: Anxiety
     Route: 048
  2. IMATINIB [Suspect]
     Active Substance: IMATINIB
     Indication: Anxiety
     Route: 065

REACTIONS (3)
  - Chronic myeloid leukaemia [Unknown]
  - Priapism [Recovering/Resolving]
  - Drug interaction [Recovering/Resolving]
